FAERS Safety Report 14260161 (Version 2)
Quarter: 2017Q4

REPORT INFORMATION
  Report Type: Spontaneous
  Country: IT (occurrence: IT)
  Receive Date: 20171207
  Receipt Date: 20171227
  Transmission Date: 20180321
  Serious: Yes (Other)
  Sender: FDA-Public Use
  Company Number: IT-BAYER-2017-231117

PATIENT
  Age: 69 Year
  Sex: Male

DRUGS (1)
  1. STIVARGA [Suspect]
     Active Substance: REGORAFENIB
     Indication: COLON CANCER
     Dosage: 120 MG, QD
     Route: 048
     Dates: start: 20170925, end: 20171113

REACTIONS (8)
  - Pyrexia [Unknown]
  - Cough [Unknown]
  - Decreased appetite [Unknown]
  - Pain in extremity [Unknown]
  - Palmar-plantar erythrodysaesthesia syndrome [Unknown]
  - Blister [Unknown]
  - Skin fissures [Unknown]
  - Diarrhoea [Unknown]

NARRATIVE: CASE EVENT DATE: 20171004
